FAERS Safety Report 19785766 (Version 1)
Quarter: 2021Q3

REPORT INFORMATION
  Report Type: Spontaneous
  Country: US (occurrence: US)
  Receive Date: 20210903
  Receipt Date: 20210903
  Transmission Date: 20211014
  Serious: No
  Sender: FDA-Public Use
  Company Number: US-VELOXIS PHARMACEUTICALS-2020VELUS-001118

PATIENT
  Sex: Female

DRUGS (4)
  1. SENSIPAR [Concomitant]
     Active Substance: CINACALCET HYDROCHLORIDE
     Indication: PRODUCT USED FOR UNKNOWN INDICATION
     Dosage: UNK
     Route: 065
  2. PREDNISONE. [Concomitant]
     Active Substance: PREDNISONE
     Indication: PRODUCT USED FOR UNKNOWN INDICATION
     Dosage: UNK
     Route: 065
  3. ENVARSUS XR [Suspect]
     Active Substance: TACROLIMUS
     Indication: PRODUCT USED FOR UNKNOWN INDICATION
     Dosage: 5 MG (STRENGTH 1 MG)
     Route: 065
     Dates: start: 202010
  4. ENVARSUS XR [Suspect]
     Active Substance: TACROLIMUS
     Dosage: 5 MG  (STRENGTH 4 MG )
     Route: 065
     Dates: start: 202010

REACTIONS (2)
  - Headache [Unknown]
  - Alopecia [Unknown]
